FAERS Safety Report 24765199 (Version 1)
Quarter: 2024Q4

REPORT INFORMATION
  Report Type: Spontaneous
  Country: US (occurrence: US)
  Receive Date: 20241223
  Receipt Date: 20241223
  Transmission Date: 20250114
  Serious: Yes (Hospitalization)
  Sender: AUROBINDO
  Company Number: US-AUROBINDO-AUR-APL-2024-062187

PATIENT
  Age: 47 Year
  Sex: Male

DRUGS (5)
  1. APIXABAN [Suspect]
     Active Substance: APIXABAN
     Indication: Segmental arterial mediolysis
     Dosage: 5 MILLIGRAM, TWO TIMES A DAY
     Route: 065
  2. APIXABAN [Suspect]
     Active Substance: APIXABAN
     Indication: Intestinal ischaemia
  3. APIXABAN [Suspect]
     Active Substance: APIXABAN
     Indication: Embolism
  4. ASPIRIN [Suspect]
     Active Substance: ASPIRIN
     Indication: Segmental arterial mediolysis
     Dosage: 81 MILLIGRAM, DAILY
     Route: 065
  5. ASPIRIN [Suspect]
     Active Substance: ASPIRIN
     Indication: Embolism

REACTIONS (1)
  - Drug ineffective [Unknown]
